FAERS Safety Report 14695303 (Version 1)
Quarter: 2018Q1

REPORT INFORMATION
  Report Type: Spontaneous
  Country: US (occurrence: US)
  Receive Date: 20180329
  Receipt Date: 20180329
  Transmission Date: 20180509
  Serious: Yes (Other)
  Sender: FDA-Public Use
  Company Number: US-PFIZER INC-2018119408

PATIENT
  Sex: Female

DRUGS (1)
  1. AMIODARONE HCL [Suspect]
     Active Substance: AMIODARONE HYDROCHLORIDE
     Indication: ATRIAL FIBRILLATION
     Dosage: 200 MG, UNK
     Route: 048
     Dates: start: 201511

REACTIONS (9)
  - Pulmonary toxicity [Unknown]
  - Blindness [Unknown]
  - Oedema [Unknown]
  - Muscle disorder [Unknown]
  - Sarcoidosis [Unknown]
  - Bone marrow granuloma [Unknown]
  - Product use in unapproved indication [Unknown]
  - Nervous system disorder [Unknown]
  - Hypothyroidism [Unknown]

NARRATIVE: CASE EVENT DATE: 201601
